FAERS Safety Report 9056571 (Version 1)
Quarter: 2013Q1

REPORT INFORMATION
  Report Type: Spontaneous
  Country: US (occurrence: US)
  Receive Date: 20130204
  Receipt Date: 20130204
  Transmission Date: 20140127
  Serious: Yes (Other)
  Sender: FDA-Public Use
  Company Number: US-COVIDIEN/TYCO HEALTHCARE/MALLINCKRODT-T201300171

PATIENT
  Sex: Female

DRUGS (1)
  1. FENTANYL TRANSDERMAL SYSTEM [Suspect]
     Indication: PRODUCT USED FOR UNKNOWN INDICATION
     Dosage: 100 MCG/HR, UNK

REACTIONS (9)
  - Hypersomnia [Unknown]
  - Hypopnoea [Unknown]
  - Dyspnoea [Unknown]
  - Upper airway obstruction [Unknown]
  - Urticaria [Unknown]
  - Drug effect increased [Unknown]
  - Fear [Unknown]
  - Rash [Unknown]
  - Drug effect decreased [Unknown]
